FAERS Safety Report 16555877 (Version 1)
Quarter: 2019Q3

REPORT INFORMATION
  Report Type: Spontaneous
  Country: US (occurrence: US)
  Receive Date: 20190710
  Receipt Date: 20190710
  Transmission Date: 20191004
  Serious: Yes (Hospitalization)
  Sender: FDA-Public Use
  Company Number: US-MYLANLABS-2019M1061174

PATIENT
  Age: 45 Year
  Sex: Male

DRUGS (10)
  1. VOLTAREN [Suspect]
     Active Substance: DICLOFENAC SODIUM
     Indication: HEAD INJURY
     Dosage: UNK
     Dates: start: 201905, end: 201905
  2. SOMA [Suspect]
     Active Substance: CARISOPRODOL
     Indication: ANKLE FRACTURE
  3. SOMA [Suspect]
     Active Substance: CARISOPRODOL
     Indication: HEAD INJURY
     Dosage: UNK
     Route: 065
     Dates: start: 201905, end: 201905
  4. VOLTAREN [Suspect]
     Active Substance: DICLOFENAC SODIUM
     Indication: ANKLE FRACTURE
  5. GABAPENTIN. [Suspect]
     Active Substance: GABAPENTIN
     Indication: HEAD INJURY
     Dosage: UNK
     Dates: start: 201905, end: 201905
  6. GABAPENTIN. [Suspect]
     Active Substance: GABAPENTIN
     Indication: ANKLE FRACTURE
  7. ANTABUSE [Concomitant]
     Active Substance: DISULFIRAM
  8. VIVITROL [Suspect]
     Active Substance: NALTREXONE
     Indication: ALCOHOLISM
     Dosage: 380 MILLIGRAM, MONTHLY
     Route: 030
  9. VIVITROL [Suspect]
     Active Substance: NALTREXONE
     Indication: DRUG DEPENDENCE
  10. VICODIN [Suspect]
     Active Substance: ACETAMINOPHEN\HYDROCODONE BITARTRATE
     Indication: PAIN
     Dosage: 5 MILLIGRAM

REACTIONS (3)
  - Pain [Not Recovered/Not Resolved]
  - Malaise [Unknown]
  - Inadequate analgesia [Not Recovered/Not Resolved]

NARRATIVE: CASE EVENT DATE: 201905
